FAERS Safety Report 16323654 (Version 1)
Quarter: 2019Q2

REPORT INFORMATION
  Report Type: Spontaneous
  Country: NL (occurrence: NL)
  Receive Date: 20190517
  Receipt Date: 20190517
  Transmission Date: 20190711
  Serious: Yes (Other)
  Sender: FDA-Public Use
  Company Number: NL-TEVA-2019-NL-1050744

PATIENT
  Sex: Female

DRUGS (4)
  1. PAROXETINE 20MG [Concomitant]
     Active Substance: PAROXETINE
     Dosage: 20 MILLIGRAM DAILY; 1DD1
  2. BUDESONIDE/FORMOTEROL 200/6 [Concomitant]
  3. METOPROLOL TABLET, 50 MG (MILLIGRAM) [Suspect]
     Active Substance: METOPROLOL
     Indication: HYPERTENSION
     Dosage: 50 MILLIGRAM DAILY;
     Dates: start: 20181214, end: 20190315
  4. CALCIUM/VIT D 500/400 [Concomitant]
     Dosage: 1 DOSAGE FORMS DAILY;

REACTIONS (5)
  - Mental disorder [Recovering/Resolving]
  - Feeling hot [Recovering/Resolving]
  - Drug interaction [Recovering/Resolving]
  - Withdrawal syndrome [Recovering/Resolving]
  - Headache [Recovered/Resolved]
